FAERS Safety Report 15967393 (Version 8)
Quarter: 2020Q4

REPORT INFORMATION
  Report Type: Spontaneous
  Country: US (occurrence: US)
  Receive Date: 20190215
  Receipt Date: 20201118
  Transmission Date: 20210113
  Serious: Yes (Hospitalization, Other)
  Sender: FDA-Public Use
  Company Number: US-SA-2019SA042012

PATIENT

DRUGS (2)
  1. DUPIXENT [Suspect]
     Active Substance: DUPILUMAB
     Dosage: 600 MG, 1X
     Route: 058
     Dates: start: 201901, end: 201901
  2. DUPIXENT [Suspect]
     Active Substance: DUPILUMAB
     Dosage: 300 MG, QOW
     Route: 058
     Dates: start: 201901

REACTIONS (11)
  - Pain of skin [Unknown]
  - Urinary tract infection [Unknown]
  - Eye pain [Unknown]
  - Melaena [Unknown]
  - Pruritus [Unknown]
  - Sinusitis [Unknown]
  - Eye pruritus [Unknown]
  - Ocular hyperaemia [Unknown]
  - Scratch [Unknown]
  - Fungal infection [Unknown]
  - Eye discharge [Unknown]

NARRATIVE: CASE EVENT DATE: 201910
